FAERS Safety Report 8849067 (Version 1)
Quarter: 2012Q4

REPORT INFORMATION
  Report Type: 
  Country: BR (occurrence: BR)
  Receive Date: 20121019
  Receipt Date: 20121019
  Transmission Date: 20130627
  Serious: Yes (Hospitalization, Other)
  Sender: FDA-Public Use
  Company Number: PHBS2008BR01214

PATIENT
  Age: 60 Year
  Sex: Female
  Weight: 80 kg

DRUGS (5)
  1. ESTRADOT [Suspect]
     Indication: OSTEOPOROSIS POSTMENOPAUSAL
     Dosage: 50 ug, 1 adhesive 3 to 3 days
     Route: 062
     Dates: start: 2004
  2. ESTRADOT [Suspect]
     Dosage: 25 ug, 1 adhesive 3 to 3 days
     Route: 062
     Dates: start: 2006
  3. OMEPRAZOLE [Concomitant]
     Indication: HIATUS HERNIA
     Dosage: 20 mg, ONCE/SINGLE
     Route: 048
     Dates: start: 1999
  4. CALCIUM [Concomitant]
     Indication: OSTEOPENIA
     Dosage: 1 DF, UNK
     Route: 048
     Dates: start: 2004
  5. NEOVITE [Concomitant]
     Indication: EYE DISORDER
     Dosage: 1 DF, ONCE/SINGLE
     Route: 048
     Dates: start: 201209

REACTIONS (15)
  - Breast mass [Unknown]
  - Rectal polyp [Recovered/Resolved]
  - Intestinal polyp [Recovered/Resolved]
  - Osteoarthritis [Not Recovered/Not Resolved]
  - Pain [Not Recovered/Not Resolved]
  - Anxiety [Recovered/Resolved]
  - Memory impairment [Unknown]
  - Malaise [Recovered/Resolved]
  - Blood triglycerides increased [Unknown]
  - Diarrhoea [Not Recovered/Not Resolved]
  - Hypertension [Recovered/Resolved]
  - Abdominal distension [Recovered/Resolved]
  - Nervousness [Recovered/Resolved]
  - Weight increased [Not Recovered/Not Resolved]
  - Hot flush [Recovered/Resolved]
